FAERS Safety Report 5700007-8 (Version None)
Quarter: 2008Q2

REPORT INFORMATION
  Report Type: 
  Country: None (occurrence: None)
  Receive Date: 20080410
  Receipt Date: 20080401
  Transmission Date: 20081010
  Serious: Yes (Life-Threatening)
  Sender: FDA-Public Use
  Company Number: GB-ASTRAZENECA-2008SE01801

PATIENT
  Age: 73 Year
  Sex: Male
  Weight: 69 kg

DRUGS (1)
  1. AMIAS [Suspect]
     Route: 065
     Dates: start: 20080124, end: 20080215

REACTIONS (1)
  - PANCREATITIS ACUTE [None]
